FAERS Safety Report 10728779 (Version 1)
Quarter: 2015Q1

REPORT INFORMATION
  Report Type: Spontaneous
  Country: US (occurrence: US)
  Receive Date: 20150122
  Receipt Date: 20150122
  Transmission Date: 20150721
  Serious: No
  Sender: FDA-Public Use
  Company Number: US-009507513-1501USA005438

PATIENT
  Age: 25 Year
  Sex: Female
  Weight: 81.63 kg

DRUGS (1)
  1. NUVARING [Suspect]
     Active Substance: ETHINYL ESTRADIOL\ETONOGESTREL
     Indication: CONTRACEPTION
     Dosage: 1 DF, QM, 1 RING /3 WEEKS IN / 1 WEEK OUT
     Route: 067
     Dates: start: 201310, end: 201501

REACTIONS (2)
  - Menstruation irregular [Unknown]
  - Device expulsion [Unknown]

NARRATIVE: CASE EVENT DATE: 20150112
